FAERS Safety Report 26058337 (Version 2)
Quarter: 2025Q4

REPORT INFORMATION
  Report Type: Spontaneous
  Country: EU (occurrence: EU)
  Receive Date: 20251118
  Receipt Date: 20251120
  Transmission Date: 20260118
  Serious: Yes (Life-Threatening, Hospitalization)
  Sender: TEVA
  Company Number: EU-TEVA-VS-3389968

PATIENT
  Age: 62 Year
  Sex: Female

DRUGS (13)
  1. CARBAMAZEPINE [Suspect]
     Active Substance: CARBAMAZEPINE
     Indication: Stiff person syndrome
     Route: 065
  2. CLONAZEPAM [Suspect]
     Active Substance: CLONAZEPAM
     Indication: Stiff person syndrome
     Route: 065
  3. AZATHIOPRINE [Suspect]
     Active Substance: AZATHIOPRINE
     Indication: Stiff person syndrome
     Route: 065
  4. FLUDARABINE [Concomitant]
     Active Substance: FLUDARABINE PHOSPHATE
     Indication: Product used for unknown indication
     Route: 065
  5. TRIAMCINOLONE [Suspect]
     Active Substance: TRIAMCINOLONE
     Indication: Stiff person syndrome
     Route: 037
  6. BOTULINUM TOXIN NOS [Suspect]
     Active Substance: BOTULINUM TOXIN NOS
     Indication: Stiff person syndrome
     Route: 065
  7. MIVOCABTAGENE AUTOLEUCEL [Suspect]
     Active Substance: MIVOCABTAGENE AUTOLEUCEL
     Indication: Stiff person syndrome
     Dosage: 1 ? 108 ANTI-CD19 CAR-T CELLS
     Route: 065
  8. GABAPENTIN [Suspect]
     Active Substance: GABAPENTIN
     Indication: Stiff person syndrome
     Route: 065
  9. METHYLPREDNISOLONE [Suspect]
     Active Substance: METHYLPREDNISOLONE
     Indication: Stiff person syndrome
     Route: 042
  10. RITUXIMAB [Suspect]
     Active Substance: RITUXIMAB
     Indication: Stiff person syndrome
     Route: 065
  11. BACLOFEN [Suspect]
     Active Substance: BACLOFEN
     Indication: Stiff person syndrome
     Route: 065
  12. HUMAN IMMUNOGLOBULIN G [Suspect]
     Active Substance: HUMAN IMMUNOGLOBULIN G
     Indication: Stiff person syndrome
     Route: 042
  13. CYCLOPHOSPHAMIDE [Concomitant]
     Active Substance: CYCLOPHOSPHAMIDE
     Indication: Product used for unknown indication
     Route: 065

REACTIONS (4)
  - Cytokine release syndrome [Recovering/Resolving]
  - Leukopenia [Unknown]
  - Drug ineffective [Unknown]
  - Off label use [Recovering/Resolving]
